FAERS Safety Report 11886661 (Version 1)
Quarter: 2016Q1

REPORT INFORMATION
  Report Type: Spontaneous
  Country: US (occurrence: US)
  Receive Date: 20160104
  Receipt Date: 20160104
  Transmission Date: 20160526
  Serious: No
  Sender: FDA-Public Use
  Company Number: US-BAYER-2015-498156

PATIENT
  Age: 37 Year
  Sex: Male
  Weight: 77.98 kg

DRUGS (1)
  1. ALEVE [Suspect]
     Active Substance: NAPROXEN SODIUM
     Indication: ANALGESIC THERAPY
     Dosage: 3 DF, PRN
     Route: 048
     Dates: start: 2010

REACTIONS (2)
  - Unevaluable event [None]
  - Product use issue [None]

NARRATIVE: CASE EVENT DATE: 2010
